FAERS Safety Report 14171599 (Version 1)
Quarter: 2017Q4

REPORT INFORMATION
  Report Type: Not Available
  Country: US (occurrence: US)
  Receive Date: 20171108
  Receipt Date: 20171108
  Transmission Date: 20180321
  Serious: No
  Sender: FDA-Public Use
  Company Number: US-ANIPHARMA-2017-US-013259

PATIENT
  Sex: Female

DRUGS (1)
  1. PROPRANOLOL EXTENDED RELEASE CAPSULES (NON-SPECIFIC) [Suspect]
     Active Substance: PROPRANOLOL HYDROCHLORIDE

REACTIONS (1)
  - Drug ineffective [Unknown]
